FAERS Safety Report 12188514 (Version 1)
Quarter: 2016Q1

REPORT INFORMATION
  Report Type: Report from Study
  Country: US (occurrence: US)
  Receive Date: 20160317
  Receipt Date: 20160317
  Transmission Date: 20160526
  Serious: Yes (Other)
  Sender: FDA-Public Use
  Company Number: US-BRISTOL-MYERS SQUIBB COMPANY-BMS-2016-016781

PATIENT
  Sex: Male
  Weight: 72.88 kg

DRUGS (9)
  1. METHYLPREDNISOLONE. [Concomitant]
     Active Substance: METHYLPREDNISOLONE
     Indication: TRANSPLANT
     Dosage: UNK
     Route: 065
     Dates: start: 20111228
  2. ZENAPAX [Concomitant]
     Active Substance: DACLIZUMAB
     Indication: TRANSPLANT
     Dosage: 20 MG, UNK
     Route: 065
     Dates: start: 20111228, end: 20111231
  3. PREDNISONE. [Concomitant]
     Active Substance: PREDNISONE
     Indication: TRANSPLANT
     Dosage: UNK
     Route: 065
     Dates: start: 20111228
  4. MYCOPHENOLATE MOFETIL. [Concomitant]
     Active Substance: MYCOPHENOLATE MOFETIL
     Indication: TRANSPLANT
     Dosage: 2000 MG, QD
     Route: 065
     Dates: start: 20111228
  5. SOLU-MEDROL [Concomitant]
     Active Substance: METHYLPREDNISOLONE SODIUM SUCCINATE
     Indication: TRANSPLANT
     Dosage: UNK
     Route: 065
     Dates: start: 20111228
  6. SIMULECT [Concomitant]
     Active Substance: BASILIXIMAB
     Indication: TRANSPLANT
     Dosage: 20 MG, UNK
     Route: 065
     Dates: start: 20111228, end: 20111231
  7. BELATACEPT [Suspect]
     Active Substance: BELATACEPT
     Indication: TRANSPLANT
     Dosage: 1 DF, 750 UNIT NOS
     Route: 065
     Dates: start: 20111228
  8. DECADRON [Concomitant]
     Active Substance: DEXAMETHASONE
     Indication: TRANSPLANT
     Dosage: UNK
     Route: 065
     Dates: start: 20111228
  9. MEDROL [Concomitant]
     Active Substance: METHYLPREDNISOLONE
     Indication: TRANSPLANT
     Dosage: UNK
     Route: 065
     Dates: start: 20111228

REACTIONS (2)
  - Neuropathy peripheral [Unknown]
  - Transplant failure [Unknown]
